FAERS Safety Report 12077936 (Version 2)
Quarter: 2016Q1

REPORT INFORMATION
  Report Type: Report from Study
  Country: AU (occurrence: AU)
  Receive Date: 20160215
  Receipt Date: 20160311
  Transmission Date: 20160526
  Serious: Yes (Hospitalization)
  Sender: FDA-Public Use
  Company Number: AU-ABBVIE-16P-008-1557627-00

PATIENT
  Sex: Male

DRUGS (2)
  1. RIBAVIRIN. [Suspect]
     Active Substance: RIBAVIRIN
     Indication: HEPATITIS C
     Dosage: AV1 X 2 IN THE MORNING; AV2 X 1 TWICE DAILY; RIBAVIRIN 200MG (1200MG DAILY)
     Route: 048
     Dates: start: 20151027
  2. VIEKIRA PAK [Suspect]
     Active Substance: DASABUVIR\OMBITASVIR\PARITAPREVIR\RITONAVIR
     Indication: HEPATITIS C
     Dosage: AV1 X 2 IN THE MORNING; AV2 X 1 BID
     Route: 048
     Dates: start: 20151027

REACTIONS (1)
  - Unevaluable event [Unknown]
